FAERS Safety Report 5202094-2 (Version None)
Quarter: 2007Q1

REPORT INFORMATION
  Report Type: 
  Country: None (occurrence: None)
  Receive Date: 20070103
  Receipt Date: 20061225
  Transmission Date: 20070707
  Serious: Yes (Life-Threatening)
  Sender: FDA-Public Use
  Company Number: HQWYE166114DEC06

PATIENT
  Age: 29 Year
  Sex: Female

DRUGS (11)
  1. MYLOTARG [Suspect]
     Indication: ACUTE MYELOID LEUKAEMIA RECURRENT
     Dosage: 9 MG/M^2 1 X PER 1 DAY, INTRAVENOUS DRIP
     Route: 041
     Dates: start: 20060621, end: 20060621
  2. MYLOTARG [Suspect]
     Indication: ACUTE MYELOID LEUKAEMIA RECURRENT
     Dosage: 9 MG/M^2 1 X PER 1 DAY, INTRAVENOUS DRIP
     Route: 041
     Dates: start: 20060705, end: 20060705
  3. ETOPOSIDE [Concomitant]
  4. VFEND [Concomitant]
  5. CEFTAZIDIME [Concomitant]
  6. AMIKACIN SULFATE [Concomitant]
  7. MEROPEN (MEROPENEM) [Concomitant]
  8. TARGOCID [Concomitant]
  9. SULFAMETHOXAZOLE + TRIMETHOPRIM [Concomitant]
  10. POLYMYXIN B SULFATE (POLYMYXIN B SULFATE) [Concomitant]
  11. URSO (URSODEOXYCHOLIC ACID) [Concomitant]

REACTIONS (13)
  - ANAEMIA [None]
  - BRONCHOPULMONARY ASPERGILLOSIS [None]
  - CONDITION AGGRAVATED [None]
  - HAEMATOCRIT DECREASED [None]
  - HAEMOGLOBIN DECREASED [None]
  - HERPES ZOSTER [None]
  - IMMUNOSUPPRESSION [None]
  - PLATELET COUNT DECREASED [None]
  - PLEURAL EFFUSION [None]
  - PNEUMONIA [None]
  - PYREXIA [None]
  - RED BLOOD CELL COUNT DECREASED [None]
  - WHITE BLOOD CELL COUNT DECREASED [None]
